FAERS Safety Report 16193711 (Version 2)
Quarter: 2019Q2

REPORT INFORMATION
  Report Type: Spontaneous
  Country: US (occurrence: US)
  Receive Date: 20190413
  Receipt Date: 20190425
  Transmission Date: 20190711
  Serious: No
  Sender: FDA-Public Use
  Company Number: US-009507513-1904USA004394

PATIENT
  Sex: Female

DRUGS (9)
  1. DOXYCYCLINE. [Concomitant]
     Active Substance: DOXYCYCLINE
     Dosage: 100 MILLIGRAM
     Dates: start: 20180417
  2. PROGESTERONE. [Concomitant]
     Active Substance: PROGESTERONE
     Dosage: 50 MILLIGRAM PER MILLILITRE, MDV (MULTILE DOSE VIAL)
     Dates: start: 20180530
  3. GANIRELIX ACETATE. [Concomitant]
     Active Substance: GANIRELIX ACETATE
     Dosage: 250 MICROGRAM
     Dates: start: 20180417
  4. FOLLISTIM [Suspect]
     Active Substance: FOLLITROPIN
     Indication: INFERTILITY FEMALE
     Dosage: 450 UNITS, QD
     Route: 058
     Dates: start: 20180417
  5. GONADOTROPIN, CHORIONIC [Concomitant]
     Active Substance: CHORIOGONADOTROPIN ALFA
     Dosage: LOW DOSE 10 UNITS/0.1 ML BSW
     Dates: start: 20181023
  6. PREGNYL [Concomitant]
     Active Substance: CHORIOGONADOTROPIN ALFA
     Dosage: 1000 UNIT
     Dates: start: 20180417
  7. ENDOMETRIN [Concomitant]
     Active Substance: PROGESTERONE
     Dosage: 100 MILLIGRAM
     Dates: start: 20180417
  8. ESTRADIOL. [Concomitant]
     Active Substance: ESTRADIOL
     Dosage: 2 MILLIGRAM
     Dates: start: 20180417
  9. MENOPUR [Concomitant]
     Active Substance: FOLLITROPIN\LUTEINIZING HORMONE
     Dosage: 75  IU SDV (SINGLE DOSE VIAL)
     Dates: start: 20180417

REACTIONS (1)
  - Headache [Recovered/Resolved]

NARRATIVE: CASE EVENT DATE: 20190401
